FAERS Safety Report 21074123 (Version 3)
Quarter: 2022Q3

REPORT INFORMATION
  Report Type: Spontaneous
  Country: PL (occurrence: PL)
  Receive Date: 20220713
  Receipt Date: 20220802
  Transmission Date: 20221027
  Serious: Yes (Other)
  Sender: FDA-Public Use
  Company Number: PL-ARISTO PHARMA-PARA202206171

PATIENT
  Age: 22 Year
  Sex: Female

DRUGS (4)
  1. ACETAMINOPHEN [Suspect]
     Active Substance: ACETAMINOPHEN
     Indication: Dysmenorrhoea
     Dosage: 1 GRAM, 3 TIMES A DAY
     Route: 065
  2. DIENOGEST + ETHINYLESTRADIOL [Concomitant]
     Indication: Hormonal contraception
     Dosage: PO
     Route: 048
  3. DROTAVERINE [Concomitant]
     Active Substance: DROTAVERINE
     Indication: Product used for unknown indication
     Dosage: UNK
     Route: 065
  4. BUTYLSCOPOLAMINE BROMIDE [Concomitant]
     Active Substance: BUTYLSCOPOLAMINE BROMIDE
     Indication: Product used for unknown indication
     Dosage: UNK
     Route: 065

REACTIONS (3)
  - Abdominal pain [Unknown]
  - Visceral pain [Unknown]
  - Drug ineffective [Unknown]
